FAERS Safety Report 8432010-1 (Version None)
Quarter: 2012Q2

REPORT INFORMATION
  Report Type: 
  Country: None (occurrence: None)
  Receive Date: 20120613
  Receipt Date: 20111116
  Transmission Date: 20120825
  Serious: No
  Sender: FDA-Public Use
  Company Number: US-ASTRAZENECA-2011SE57729

PATIENT
  Age: 52 Year
  Sex: Female
  Weight: 99.8 kg

DRUGS (3)
  1. SINGULAIR [Concomitant]
  2. SYMBICORT [Suspect]
     Indication: ASTHMA
     Dosage: 160/4.5 MG 2 PUFFS TWICE A DAY
     Route: 055
  3. RHINOCORT [Suspect]
     Route: 045

REACTIONS (4)
  - COUGH [None]
  - INCORRECT DOSE ADMINISTERED [None]
  - PEAK EXPIRATORY FLOW RATE DECREASED [None]
  - CHEST DISCOMFORT [None]
